FAERS Safety Report 5927776-6 (Version None)
Quarter: 2008Q4

REPORT INFORMATION
  Report Type: 
  Country: None (occurrence: None)
  Receive Date: 20081023
  Receipt Date: 20081020
  Transmission Date: 20090506
  Serious: Yes (Hospitalization, Other)
  Sender: FDA-Public Use
  Company Number: FR-BRISTOL-MYERS SQUIBB COMPANY-14378467

PATIENT
  Age: 71 Year
  Sex: Female

DRUGS (3)
  1. KENACORT [Suspect]
     Indication: BACK PAIN
  2. ROVAMYCINE [Concomitant]
     Indication: SIALOADENITIS
  3. OFLOCET [Concomitant]
     Indication: SIALOADENITIS

REACTIONS (5)
  - ADRENAL INSUFFICIENCY [None]
  - DERMATITIS [None]
  - INTENTIONAL DRUG MISUSE [None]
  - NOSOPHOBIA [None]
  - OSTEOPOROSIS [None]
